FAERS Safety Report 22220629 (Version 1)
Quarter: 2023Q2

REPORT INFORMATION
  Report Type: Other
  Country: AU (occurrence: AU)
  Receive Date: 20230417
  Receipt Date: 20230417
  Transmission Date: 20230721
  Serious: Yes (Other)
  Sender: FDA-Public Use
  Company Number: AU-CELLTRION INC.-2023AU007833

PATIENT

DRUGS (2)
  1. RITUXIMAB [Suspect]
     Active Substance: RITUXIMAB
     Indication: Product used for unknown indication
  2. IDELALISIB [Suspect]
     Active Substance: IDELALISIB
     Indication: Product used for unknown indication

REACTIONS (9)
  - Delirium [Unknown]
  - Acute kidney injury [Unknown]
  - Febrile neutropenia [Unknown]
  - Respiratory failure [Unknown]
  - Sepsis [Unknown]
  - Cough [Unknown]
  - Fungal infection [Unknown]
  - Night sweats [Unknown]
  - Pyrexia [Unknown]
